FAERS Safety Report 7583692-8 (Version None)
Quarter: 2011Q2

REPORT INFORMATION
  Report Type: 
  Country: None (occurrence: None)
  Receive Date: 20110630
  Receipt Date: 20110622
  Transmission Date: 20111010
  Serious: Yes (Hospitalization, Disabling)
  Sender: FDA-Public Use
  Company Number: B0708181A

PATIENT
  Sex: Female
  Weight: 38 kg

DRUGS (14)
  1. XELODA [Suspect]
     Dosage: 2400MG PER DAY
     Route: 048
     Dates: start: 20100820, end: 20100824
  2. XELODA [Suspect]
     Dosage: 1800MG PER DAY
     Route: 048
     Dates: start: 20101006, end: 20101019
  3. SODIUM POLYSTYRENE SULFONATE [Concomitant]
     Route: 048
     Dates: end: 20101120
  4. VOGLIBOSE [Concomitant]
     Indication: DIABETES MELLITUS
     Route: 048
     Dates: end: 20101220
  5. TYKERB [Suspect]
     Dosage: 1250MG PER DAY
     Route: 048
     Dates: start: 20100830, end: 20100928
  6. TAMOXIFEN CITRATE [Concomitant]
     Indication: BREAST CANCER
     Dosage: 20MG PER DAY
     Route: 048
     Dates: end: 20101220
  7. XELODA [Suspect]
     Dosage: 1200MG PER DAY
     Route: 048
     Dates: start: 20101028, end: 20101110
  8. TYKERB [Suspect]
     Indication: BREAST CANCER
     Dosage: 1250MG PER DAY
     Route: 048
     Dates: start: 20100820, end: 20100824
  9. TYKERB [Suspect]
     Dosage: 1250MG PER DAY
     Route: 048
     Dates: start: 20101006, end: 20101110
  10. XELODA [Suspect]
     Dosage: 1200MG PER DAY
     Route: 048
     Dates: start: 20101126, end: 20101130
  11. XELODA [Suspect]
     Dosage: 1800MG PER DAY
     Route: 048
     Dates: start: 20100830, end: 20100928
  12. MS CONTIN [Concomitant]
     Indication: PAIN
     Route: 048
     Dates: end: 20101221
  13. BETAMETHASONE [Concomitant]
     Route: 048
     Dates: start: 20100805, end: 20101220
  14. TYKERB [Suspect]
     Dosage: 1000MG PER DAY
     Route: 048
     Dates: start: 20101126, end: 20101130

REACTIONS (5)
  - PALMAR-PLANTAR ERYTHRODYSAESTHESIA SYNDROME [None]
  - MALAISE [None]
  - PLATELET COUNT DECREASED [None]
  - DECREASED APPETITE [None]
  - STOMATITIS [None]
